FAERS Safety Report 6218519-X (Version None)
Quarter: 2009Q2

REPORT INFORMATION
  Report Type: 
  Country: None (occurrence: None)
  Receive Date: 20090608
  Receipt Date: 20090528
  Transmission Date: 20091009
  Serious: Yes (Other)
  Sender: FDA-Public Use
  Company Number: BR-JNJFOC-20090600503

PATIENT
  Age: 38 Year
  Sex: Male

DRUGS (3)
  1. REMICADE [Suspect]
     Indication: ANAL FISTULA
     Route: 042
  2. REMICADE [Suspect]
     Indication: CROHN'S DISEASE
     Dosage: 4 AMPOULES EVERY 8 WEEKS
     Route: 042
  3. AZATHIOPRINE [Concomitant]

REACTIONS (2)
  - DRUG INEFFECTIVE [None]
  - RECTAL CANCER [None]
